FAERS Safety Report 17834056 (Version 1)
Quarter: 2020Q2

REPORT INFORMATION
  Report Type: Spontaneous
  Country: US (occurrence: US)
  Receive Date: 20200527
  Receipt Date: 20200527
  Transmission Date: 20200714
  Serious: Yes (Disabling)
  Sender: FDA-Public Use
  Company Number: None

PATIENT
  Age: 84 Year
  Sex: Female
  Weight: 79.38 kg

DRUGS (12)
  1. ALLERGY RELIEF [Concomitant]
  2. MELATONIN [Concomitant]
     Active Substance: MELATONIN
  3. CIPROFLOXACIN MANUFACTURED BY TEVA PHARMACEUTICALS [Suspect]
     Active Substance: CIPROFLOXACIN
     Indication: SINUSITIS
     Route: 048
     Dates: start: 2018
  4. AZELASTINE. [Concomitant]
     Active Substance: AZELASTINE HYDROCHLORIDE
  5. LOSARTAN. [Concomitant]
     Active Substance: LOSARTAN
  6. PRESERVISION [Concomitant]
     Active Substance: MINERALS\VITAMINS
  7. FAMOTIDINE. [Concomitant]
     Active Substance: FAMOTIDINE
  8. ROPINAROLE [Concomitant]
  9. TRAMADOL. [Concomitant]
     Active Substance: TRAMADOL
  10. VITAMIN D [Concomitant]
     Active Substance: VITAMIN D NOS
  11. LABETALOL [Concomitant]
     Active Substance: LABETALOL\LABETALOL HYDROCHLORIDE
  12. ZOLPIDEM [Concomitant]
     Active Substance: ZOLPIDEM TARTRATE

REACTIONS (4)
  - Plantar fasciitis [None]
  - Foot deformity [None]
  - Tendon rupture [None]
  - Tendon pain [None]
